FAERS Safety Report 4381639-9 (Version None)
Quarter: 2004Q2

REPORT INFORMATION
  Report Type: 
  Country: None (occurrence: None)
  Receive Date: 20040621
  Receipt Date: 20040614
  Transmission Date: 20050107
  Serious: Yes (Hospitalization)
  Sender: FDA-Public Use
  Company Number: FR-ROCHE-371111

PATIENT
  Age: 52 Year
  Sex: Male
  Weight: 65 kg

DRUGS (1)
  1. ROCEPHIN [Suspect]
     Indication: DRUG USE FOR UNKNOWN INDICATION
     Dosage: DRUG NAME REPORTED AS ROCEPHINE 1G/3.5ML. FORMULATION REPORTED AS INJECTABLE SOLUTION.
     Route: 030
     Dates: start: 20030815, end: 20030815

REACTIONS (4)
  - DYSPNOEA [None]
  - HYPOTENSION [None]
  - MALAISE [None]
  - URTICARIA [None]
